FAERS Safety Report 7361915-8 (Version None)
Quarter: 2011Q1

REPORT INFORMATION
  Report Type: 
  Country: None (occurrence: None)
  Receive Date: 20110318
  Receipt Date: 20110315
  Transmission Date: 20110831
  Serious: Yes (Other)
  Sender: FDA-Public Use
  Company Number: US-BRISTOL-MYERS SQUIBB COMPANY-15609910

PATIENT
  Sex: Female

DRUGS (1)
  1. STADOL [Suspect]

REACTIONS (8)
  - BLOOD PRESSURE DECREASED [None]
  - DYSPNOEA [None]
  - PRURITUS [None]
  - PREGNANCY [None]
  - HAEMORRHAGE [None]
  - SPEECH DISORDER [None]
  - HYPERHIDROSIS [None]
  - GAIT DISTURBANCE [None]
